FAERS Safety Report 11566048 (Version 1)
Quarter: 2015Q3

REPORT INFORMATION
  Report Type: Spontaneous
  Country: GB (occurrence: GB)
  Receive Date: 20150929
  Receipt Date: 20150929
  Transmission Date: 20151125
  Serious: Yes (Life-Threatening)
  Sender: FDA-Public Use
  Company Number: GB-HOSPIRA-2939887

PATIENT
  Age: 38 Year
  Sex: Female
  Weight: 80 kg

DRUGS (3)
  1. ATRACURIUM BESILATE [Suspect]
     Active Substance: ATRACURIUM BESYLATE
     Indication: MUSCLE RELAXANT THERAPY
     Route: 042
     Dates: start: 20150625, end: 20150625
  2. CITALOPRAM [Concomitant]
     Active Substance: CITALOPRAM HYDROBROMIDE
     Indication: PRODUCT USED FOR UNKNOWN INDICATION
  3. ATRACURIUM BESILATE [Suspect]
     Active Substance: ATRACURIUM BESYLATE
     Indication: ENDOTRACHEAL INTUBATION
     Route: 042
     Dates: start: 20150625, end: 20150625

REACTIONS (5)
  - Hypersensitivity [Recovered/Resolved]
  - Bronchospasm [Recovered/Resolved]
  - Rash [Recovered/Resolved]
  - Tachycardia [Recovered/Resolved]
  - Hypoventilation [Recovered/Resolved]

NARRATIVE: CASE EVENT DATE: 20150625
